FAERS Safety Report 18529967 (Version 1)
Quarter: 2020Q4

REPORT INFORMATION
  Report Type: Spontaneous
  Country: US (occurrence: US)
  Receive Date: 20201120
  Receipt Date: 20201120
  Transmission Date: 20210114
  Serious: Yes (Death, Hospitalization, Other)
  Sender: FDA-Public Use
  Company Number: US-PURDUE-USA-2020-0164636

PATIENT
  Age: 30 Year
  Sex: Male
  Weight: 150 kg

DRUGS (2)
  1. OXYCODONE/ ACETAMINOPHEN TABLETS [Suspect]
     Active Substance: ACETAMINOPHEN\OXYCODONE HYDROCHLORIDE
     Indication: PRODUCT USED FOR UNKNOWN INDICATION
     Dosage: UNK
     Route: 048
     Dates: start: 200809
  2. PERCOCET                           /00446701/ [Suspect]
     Active Substance: ACETAMINOPHEN\OXYCODONE HYDROCHLORIDE\OXYCODONE TEREPHTHALATE
     Indication: PRODUCT USED FOR UNKNOWN INDICATION
     Dosage: UNK
     Route: 065
     Dates: start: 200809

REACTIONS (14)
  - Overdose [Fatal]
  - Hepatomegaly [Unknown]
  - Splenomegaly [Unknown]
  - Renal disorder [Unknown]
  - Hospitalisation [Recovered/Resolved]
  - Cardiomegaly [Unknown]
  - Drug dependence [Unknown]
  - Pulmonary congestion [Unknown]
  - Oedema [Unknown]
  - Drug abuse [Unknown]
  - Dilatation ventricular [Unknown]
  - Hepatosplenomegaly [Unknown]
  - Kidney enlargement [Unknown]
  - Left ventricular hypertrophy [Unknown]

NARRATIVE: CASE EVENT DATE: 20110808
